FAERS Safety Report 23171611 (Version 6)
Quarter: 2024Q1

REPORT INFORMATION
  Report Type: Spontaneous
  Country: US (occurrence: US)
  Receive Date: 20231110
  Receipt Date: 20240321
  Transmission Date: 20240410
  Serious: No
  Sender: FDA-Public Use
  Company Number: US-PFIZER INC-202300353524

PATIENT
  Age: 6 Year
  Sex: Male
  Weight: 25.4 kg

DRUGS (3)
  1. GENOTROPIN [Suspect]
     Active Substance: SOMATROPIN
     Indication: Guillain-Barre syndrome
     Dosage: DAILY DOSE WITH UNITS: 0.9
     Dates: start: 201612
  2. GENOTROPIN [Suspect]
     Active Substance: SOMATROPIN
     Indication: Growth hormone deficiency
     Dosage: DAILY DOSE WITH UNITS: .09
  3. GENOTROPIN [Suspect]
     Active Substance: SOMATROPIN
     Dosage: 0.9 MG
     Dates: start: 2016

REACTIONS (2)
  - Drug dose omission by device [Unknown]
  - Device use issue [Unknown]
